FAERS Safety Report 19189000 (Version 2)
Quarter: 2021Q2

REPORT INFORMATION
  Report Type: Report from Study
  Country: US (occurrence: US)
  Receive Date: 20210428
  Receipt Date: 20210428
  Transmission Date: 20210717
  Serious: Yes (Other)
  Sender: FDA-Public Use
  Company Number: US-SUN PHARMACEUTICAL INDUSTRIES LTD-2021R1-293428

PATIENT

DRUGS (12)
  1. NALIDIXIC ACID [Suspect]
     Active Substance: NALIDIXIC ACID
     Indication: PROVIDENCIA INFECTION
     Dosage: UNK
     Route: 065
  2. CEFTAZIDIME. [Suspect]
     Active Substance: CEFTAZIDIME
     Indication: PROVIDENCIA INFECTION
     Dosage: UNK
     Route: 065
  3. AMPICILLIN?SULBACTAM [Suspect]
     Active Substance: AMPICILLIN SODIUM\SULBACTAM SODIUM
     Indication: PROVIDENCIA INFECTION
     Dosage: UNK
     Route: 065
  4. CEFOTAXIME [Suspect]
     Active Substance: CEFOTAXIME SODIUM
     Indication: PROVIDENCIA INFECTION
     Dosage: UNK
     Route: 065
  5. AMPICILLIN [Suspect]
     Active Substance: AMPICILLIN
     Indication: PROVIDENCIA INFECTION
     Dosage: UNK
     Route: 065
  6. MEROPENEM BASICS (MEROPENEM TRIHYDRATE) [Suspect]
     Active Substance: MEROPENEM
     Indication: PROVIDENCIA INFECTION
     Dosage: UNK
     Route: 065
  7. CEFALOTINE [Suspect]
     Active Substance: CEPHALOTHIN
     Indication: PROVIDENCIA INFECTION
     Dosage: UNK
     Route: 065
  8. CIPROFLOXAXINE [Suspect]
     Active Substance: CIPROFLOXACIN
     Indication: PROVIDENCIA INFECTION
     Dosage: UNK
     Route: 065
  9. COLISTIN [Suspect]
     Active Substance: COLISTIN
     Indication: PROVIDENCIA INFECTION
     Dosage: UNK
     Route: 065
  10. IMIPENEM [Suspect]
     Active Substance: IMIPENEM
     Indication: PROVIDENCIA INFECTION
     Dosage: UNK
     Route: 065
  11. GENTAMICIN. [Suspect]
     Active Substance: GENTAMICIN
     Indication: PROVIDENCIA INFECTION
     Dosage: UNK
     Route: 065
  12. NITROFURANTOIN. [Suspect]
     Active Substance: NITROFURANTOIN
     Indication: PROVIDENCIA INFECTION
     Dosage: UNK
     Route: 065

REACTIONS (1)
  - Drug resistance [Unknown]
